FAERS Safety Report 8783122 (Version 5)
Quarter: 2012Q4

REPORT INFORMATION
  Report Type: Report from Study
  Country: US (occurrence: US)
  Receive Date: 20120913
  Receipt Date: 20121024
  Transmission Date: 20130627
  Serious: Yes (Hospitalization, Disabling, Other)
  Sender: FDA-Public Use
  Company Number: US-JNJFOC-20120902856

PATIENT
  Age: 57 Year
  Sex: Male
  Weight: 66.23 kg

DRUGS (3)
  1. USTEKINUMAB [Suspect]
     Indication: PSORIASIS
     Route: 058
     Dates: start: 20100503
  2. USTEKINUMAB [Suspect]
     Indication: PSORIASIS
     Route: 058
     Dates: start: 20120403
  3. CORTICOSTEROIDS NOS [Concomitant]

REACTIONS (2)
  - Basal ganglia stroke [Recovered/Resolved]
  - Hypertension [Recovered/Resolved]
